FAERS Safety Report 22315481 (Version 1)
Quarter: 2023Q2

REPORT INFORMATION
  Report Type: Spontaneous
  Country: US (occurrence: US)
  Receive Date: 20230512
  Receipt Date: 20230512
  Transmission Date: 20230721
  Serious: No
  Sender: FDA-Public Use
  Company Number: US-PFIZER INC-202300184919

PATIENT
  Age: 49 Year
  Sex: Male

DRUGS (9)
  1. PAXLOVID [Suspect]
     Active Substance: NIRMATRELVIR\RITONAVIR
     Indication: COVID-19 treatment
     Dosage: UNK
     Dates: start: 20230426, end: 20230501
  2. FISH OIL [Concomitant]
     Active Substance: FISH OIL
     Dosage: UNK
     Dates: start: 201401, end: 202305
  3. FLAX OIL [Concomitant]
     Dosage: UNK
     Dates: start: 201401, end: 202305
  4. FLUSH FREE NIACIN [Concomitant]
     Dosage: UNK
     Dates: start: 201401, end: 202305
  5. PROBIOTIC 10 [BIFIDOBACTERIUM BIFIDUM;BIFIDOBACTERIUM LACTIS;LACTOBACI [Concomitant]
     Dosage: 25 BILLION
     Dates: start: 201401, end: 202305
  6. VITAMIN B12 [Concomitant]
     Active Substance: CYANOCOBALAMIN
     Dosage: UNK
     Dates: start: 201401, end: 202302
  7. SELENIUM [Concomitant]
     Active Substance: SELENIUM
     Dosage: UNK
     Dates: start: 202009, end: 202305
  8. VITAMIN D NOS [Concomitant]
     Active Substance: VITAMIN D NOS
     Dosage: UNK
     Dates: start: 201111, end: 202305
  9. ZYDUS [Concomitant]
     Dosage: UNK
     Dates: start: 201501, end: 202305

REACTIONS (2)
  - COVID-19 [Recovering/Resolving]
  - Disease recurrence [Recovering/Resolving]

NARRATIVE: CASE EVENT DATE: 20230505
